FAERS Safety Report 22625356 (Version 9)
Quarter: 2025Q1

REPORT INFORMATION
  Report Type: Spontaneous
  Country: US (occurrence: US)
  Receive Date: 20230621
  Receipt Date: 20250130
  Transmission Date: 20250409
  Serious: No
  Sender: PFIZER
  Company Number: US-PFIZER INC-PV202300107102

PATIENT
  Age: 79 Year
  Sex: Female

DRUGS (5)
  1. ZARONTIN [Suspect]
     Active Substance: ETHOSUXIMIDE
     Indication: Epilepsy
     Dosage: 1250 MG, DAILY
     Route: 048
  2. ZARONTIN [Suspect]
     Active Substance: ETHOSUXIMIDE
  3. ZARONTIN [Suspect]
     Active Substance: ETHOSUXIMIDE
     Dosage: 1250 MG, DAILY (250 MG, 5 TIMES DAILY)
  4. ZARONTIN [Suspect]
     Active Substance: ETHOSUXIMIDE
  5. DILANTIN [Concomitant]
     Active Substance: PHENYTOIN
     Route: 048

REACTIONS (4)
  - Depression [Unknown]
  - Influenza [Unknown]
  - Speech disorder [Unknown]
  - Emotional distress [Unknown]
